FAERS Safety Report 6035896-3 (Version None)
Quarter: 2009Q1

REPORT INFORMATION
  Report Type: 
  Country: None (occurrence: None)
  Receive Date: 20090113
  Receipt Date: 20090109
  Transmission Date: 20090719
  Serious: Yes (Hospitalization)
  Sender: FDA-Public Use
  Company Number: A0718184A

PATIENT
  Age: 48 Year
  Sex: Male
  Weight: 104.5 kg

DRUGS (8)
  1. AVANDIA [Suspect]
     Dosage: 8MG TWICE PER DAY
     Route: 048
     Dates: start: 20000101, end: 20050501
  2. LIPITOR [Concomitant]
  3. VASOTEC [Concomitant]
  4. LYRICA [Concomitant]
  5. ACTOS [Concomitant]
  6. GLUCOPHAGE [Concomitant]
  7. LANTUS [Concomitant]
  8. GLUCOTROL XL [Concomitant]

REACTIONS (3)
  - ARTERIAL OCCLUSIVE DISEASE [None]
  - CARDIAC FAILURE CONGESTIVE [None]
  - HEART INJURY [None]
